FAERS Safety Report 9376174 (Version 1)
Quarter: 2013Q2

REPORT INFORMATION
  Report Type: Spontaneous
  Country: GB (occurrence: GB)
  Receive Date: 20130630
  Receipt Date: 20130630
  Transmission Date: 20140414
  Serious: Yes (Other)
  Sender: FDA-Public Use
  Company Number: GB-TEVA-416086ISR

PATIENT
  Age: 24 Year
  Sex: Male
  Weight: 145.2 kg

DRUGS (5)
  1. LANSOPRAZOLE [Suspect]
     Indication: GASTROOESOPHAGEAL REFLUX DISEASE
     Route: 048
     Dates: start: 20130516, end: 20130530
  2. OMEPRAZOLE [Concomitant]
     Indication: GASTROOESOPHAGEAL REFLUX DISEASE
     Route: 048
     Dates: start: 20130507, end: 20130515
  3. CARBAMAZEPINE [Concomitant]
     Indication: TRIGEMINAL NEURALGIA
     Dosage: 400 MILLIGRAM DAILY;
     Route: 048
     Dates: start: 20130507
  4. LOPERAMIDE [Concomitant]
     Indication: FAECAL INCONTINENCE
     Dosage: AS NECESSARY
     Route: 048
     Dates: start: 20130516
  5. DOMPERIDONE [Concomitant]
     Indication: ABDOMINAL PAIN
     Route: 048
     Dates: start: 20130516

REACTIONS (5)
  - Depression [Recovered/Resolved]
  - Depressed mood [Recovered/Resolved]
  - Intentional self-injury [Recovered/Resolved]
  - Suicidal ideation [Recovered/Resolved]
  - Negative thoughts [Recovered/Resolved]
